FAERS Safety Report 4852939-0 (Version None)
Quarter: 2005Q4

REPORT INFORMATION
  Report Type: 
  Country: None (occurrence: None)
  Receive Date: 20051212
  Receipt Date: 20051212
  Transmission Date: 20060501
  Serious: Yes (Hospitalization, Other)
  Sender: FDA-Public Use
  Company Number: None

PATIENT
  Sex: Female
  Weight: 57.2 kg

DRUGS (3)
  1. GEMCITABINE [Suspect]
     Indication: BREAST CANCER
     Dosage: SEE IMAGE
     Dates: start: 20051122, end: 20051129
  2. GEMCITABINE [Suspect]
     Indication: BREAST CANCER
     Dosage: SEE IMAGE
     Dates: start: 20051122
  3. PACLITAXEL [Suspect]
     Dosage: SEE IMAGE
     Dates: start: 20051122, end: 20051129

REACTIONS (1)
  - FEBRILE NEUTROPENIA [None]
